FAERS Safety Report 6709601-9 (Version None)
Quarter: 2010Q2

REPORT INFORMATION
  Report Type: 
  Country: None (occurrence: None)
  Receive Date: 20100504
  Receipt Date: 20100423
  Transmission Date: 20101027
  Serious: Yes (Other)
  Sender: FDA-Public Use
  Company Number: US-JNJCH-2010010035

PATIENT
  Age: 66 Year
  Sex: Female
  Weight: 54.4 kg

DRUGS (1)
  1. LISTERINE WHITENING PRE-BRUSH RINSE [Suspect]
     Indication: DENTAL CARE
     Dosage: TEXT:AS DIRECTED 1X PER DAY FOR 2 DAYS
     Route: 048
     Dates: start: 20100419, end: 20100421

REACTIONS (2)
  - APPLICATION SITE PAIN [None]
  - ORAL MUCOSAL EXFOLIATION [None]
